FAERS Safety Report 6697296-2 (Version None)
Quarter: 2010Q2

REPORT INFORMATION
  Report Type: 
  Country: None (occurrence: None)
  Receive Date: 20100426
  Receipt Date: 20100325
  Transmission Date: 20101027
  Serious: No
  Sender: FDA-Public Use
  Company Number: US-BAYER-201018218NA

PATIENT
  Age: 55 Year
  Sex: Female
  Weight: 47 kg

DRUGS (4)
  1. ULTRAVIST 300 [Suspect]
     Indication: COMPUTERISED TOMOGRAM ABDOMEN
     Dosage: TOTAL DAILY DOSE: 70 ML  UNIT DOSE: 200 ML
     Route: 042
     Dates: start: 20100325, end: 20100325
  2. OXYCODONE HCL [Concomitant]
  3. IBUPROFEN [Concomitant]
  4. READI-CAT [Concomitant]
     Route: 048
     Dates: start: 20100325, end: 20100325

REACTIONS (2)
  - NAUSEA [None]
  - VOMITING [None]
